FAERS Safety Report 7809344-4 (Version None)
Quarter: 2011Q4

REPORT INFORMATION
  Report Type: 
  Country: None (occurrence: None)
  Receive Date: 20111012
  Receipt Date: 20110929
  Transmission Date: 20120403
  Serious: Yes (Death, Disabling)
  Sender: FDA-Public Use
  Company Number: IT-CELGENEUS-083-21880-11081334

PATIENT
  Sex: Female

DRUGS (7)
  1. LORAZEPAM [Concomitant]
     Dosage: 20 DROPS
     Route: 065
  2. LANSOPRAZOLE [Concomitant]
     Dosage: 30 MILLIGRAM
     Route: 065
  3. REVLIMID [Suspect]
     Dosage: 10 MILLIGRAM
     Route: 048
     Dates: start: 20110503, end: 20110517
  4. MEDROL [Concomitant]
     Dosage: 16 MILLIGRAM
     Route: 065
  5. ANAFRANIL [Concomitant]
     Dosage: 20 MILLIGRAM
     Route: 065
  6. REVLIMID [Suspect]
     Indication: MYELODYSPLASTIC SYNDROME
     Route: 048
     Dates: start: 20100201, end: 20100221
  7. FUROSEMIDE [Concomitant]
     Route: 065

REACTIONS (3)
  - GASTROINTESTINAL PAIN [None]
  - MYELODYSPLASTIC SYNDROME [None]
  - GENERAL PHYSICAL HEALTH DETERIORATION [None]
